FAERS Safety Report 25391614 (Version 2)
Quarter: 2025Q3

REPORT INFORMATION
  Report Type: Spontaneous
  Country: US (occurrence: US)
  Receive Date: 20250603
  Receipt Date: 20250916
  Transmission Date: 20251020
  Serious: No
  Sender: BRAEBURN PHARMACEUTICALS
  Company Number: US-BRAEBURN PHARMACEUTICALS-US-BRA-25-000336

PATIENT

DRUGS (2)
  1. BRIXADI [Suspect]
     Active Substance: BUPRENORPHINE
     Indication: Drug dependence
     Dosage: 24 MILLIGRAM, QW, UNDER THE SKIN
     Route: 058
     Dates: start: 20250404
  2. BRIXADI [Suspect]
     Active Substance: BUPRENORPHINE
     Dosage: 16 MILLIGRAM, QW
     Route: 058
     Dates: start: 20250530

REACTIONS (3)
  - Abdominal pain upper [Not Recovered/Not Resolved]
  - Nausea [Recovering/Resolving]
  - Vomiting [Recovering/Resolving]

NARRATIVE: CASE EVENT DATE: 20250101
